FAERS Safety Report 6347002-6 (Version None)
Quarter: 2009Q3

REPORT INFORMATION
  Report Type: 
  Country: None (occurrence: None)
  Receive Date: 20090908
  Receipt Date: 20090908
  Transmission Date: 20100115
  Serious: Yes (Other)
  Sender: FDA-Public Use
  Company Number: None

PATIENT
  Age: 52 Year
  Sex: Female
  Weight: 55.7924 kg

DRUGS (1)
  1. ACTONEL [Suspect]
     Indication: OSTEOPENIA
     Dosage: 250 MG ONCE PO
     Route: 048
     Dates: start: 20090711, end: 20090711

REACTIONS (3)
  - ARTHRALGIA [None]
  - BONE PAIN [None]
  - MYALGIA [None]
